FAERS Safety Report 10429962 (Version 1)
Quarter: 2014Q3

REPORT INFORMATION
  Report Type: Spontaneous
  Country: US (occurrence: None)
  Receive Date: 20140813
  Receipt Date: 20140813
  Transmission Date: 20150326
  Serious: Yes (Hospitalization)
  Sender: FDA-Public Use
  Company Number: 2014SE20803

PATIENT
  Age: 6 Month
  Sex: Male

DRUGS (2)
  1. SYNAGIS [Suspect]
     Active Substance: PALIVIZUMAB
     Dates: start: 20131107
  2. SYNAGIS [Suspect]
     Active Substance: PALIVIZUMAB
     Dates: start: 20131207

REACTIONS (2)
  - Pneumonia respiratory syncytial viral [None]
  - Ear infection [None]

NARRATIVE: CASE EVENT DATE: 20140323
